FAERS Safety Report 10154028 (Version 1)
Quarter: 2014Q2

REPORT INFORMATION
  Report Type: Spontaneous
  Country: US (occurrence: US)
  Receive Date: 20140506
  Receipt Date: 20140506
  Transmission Date: 20141212
  Serious: Yes (Other)
  Sender: FDA-Public Use
  Company Number: US-AMGEN-USASP2014031061

PATIENT
  Age: 68 Year
  Sex: Female

DRUGS (12)
  1. PROLIA [Suspect]
     Indication: PRODUCT USED FOR UNKNOWN INDICATION
     Dosage: UNK
     Route: 065
     Dates: start: 20140310
  2. PAROXETINE [Concomitant]
     Dosage: 40 MG, QD
  3. SIMVASTATIN [Concomitant]
     Dosage: 20 MG, AT BEDTIME
  4. LORAZEPAM [Concomitant]
     Dosage: 0.5 MG, BID
  5. BUPROPION [Concomitant]
     Dosage: 200 MG, BID
  6. CALCIUM [Concomitant]
     Dosage: 600 MG, UNK
  7. VITAMIN D                          /00107901/ [Concomitant]
     Dosage: 400 IU, UNK
  8. VITAMIN E                          /00110501/ [Concomitant]
  9. VITAMIN B12                        /00056201/ [Concomitant]
     Dosage: 2000 MUG, UNK
  10. VITAMIN D3 [Concomitant]
     Dosage: 2000 IU, UNK
  11. MAGNESIUM [Concomitant]
  12. PRILOSEC                           /00661201/ [Concomitant]
     Dosage: 40 MG, BID

REACTIONS (15)
  - Activities of daily living impaired [Unknown]
  - Mental impairment [Unknown]
  - Dyspnoea [Unknown]
  - Dizziness [Unknown]
  - Tremor [Unknown]
  - Hyperhidrosis [Unknown]
  - Pain [Unknown]
  - Hypoaesthesia [Unknown]
  - Disturbance in attention [Unknown]
  - Decreased appetite [Unknown]
  - Headache [Unknown]
  - Cardiac disorder [Unknown]
  - Insomnia [Unknown]
  - Asthenia [Unknown]
  - Weight decreased [Unknown]
